FAERS Safety Report 7179899-4 (Version None)
Quarter: 2010Q4

REPORT INFORMATION
  Report Type: 
  Country: None (occurrence: None)
  Receive Date: 20101221
  Receipt Date: 20101221
  Transmission Date: 20110411
  Serious: Yes (Hospitalization, Disabling, Other)
  Sender: FDA-Public Use
  Company Number: PHHO2009FR10739

PATIENT
  Sex: Female

DRUGS (5)
  1. FTY 720 FTY+CAP [Suspect]
     Indication: MULTIPLE SCLEROSIS
     Dosage: 1.25 MG, UNK
     Route: 048
     Dates: start: 20070424, end: 20080522
  2. PAROXETINE HCL [Concomitant]
  3. L-CARNITINE [Concomitant]
  4. TRIMETAZIDINE [Concomitant]
  5. LATANOPROST [Concomitant]

REACTIONS (13)
  - CONCOMITANT DISEASE PROGRESSION [None]
  - EXTRAOCULAR MUSCLE DISORDER [None]
  - INTRAOCULAR PRESSURE INCREASED [None]
  - LASER THERAPY [None]
  - NEOVASCULARISATION [None]
  - PHOTOCOAGULATION [None]
  - RETINAL ISCHAEMIA [None]
  - VASCULITIS [None]
  - VISUAL ACUITY REDUCED [None]
  - VITRECTOMY [None]
  - VITREOUS FLOATERS [None]
  - VITREOUS HAEMORRHAGE [None]
  - VITREOUS OPACITIES [None]
